FAERS Safety Report 8505446-8 (Version None)
Quarter: 2012Q3

REPORT INFORMATION
  Report Type: 
  Country: None (occurrence: None)
  Receive Date: 20120712
  Receipt Date: 20080519
  Transmission Date: 20120928
  Serious: Yes (Other)
  Sender: FDA-Public Use
  Company Number: CO-PFIZER INC-2012165232

PATIENT
  Age: 61 Year
  Sex: Female

DRUGS (7)
  1. LIPITOR [Suspect]
     Dosage: 10 MG, 1X/DAY
  2. ACETYLSALICYLIC ACID [Concomitant]
     Dosage: 100 MG, 1X/DAY
  3. ENALAPRIL [Concomitant]
     Dosage: 20 MG, 2X/DAY
  4. LIPITOR [Suspect]
     Dosage: 20 MG, 1X/DAY
  5. OLMESARTAN MEDOXOMIL AND HYDROCHLOROTHIZIDE [Suspect]
     Dosage: 20/12.5 MG, 1X/DAY
  6. HYDROCHLOROTHIAZIDE [Concomitant]
     Dosage: 12.5 MG, 1X/DAY
  7. METOPROLOL [Concomitant]
     Dosage: 25 MG, 2X/DAY

REACTIONS (4)
  - ASTHENIA [None]
  - LEUKOCYTURIA [None]
  - DYSURIA [None]
  - HYPERTENSIVE EMERGENCY [None]
